FAERS Safety Report 5734125-5 (Version None)
Quarter: 2008Q2

REPORT INFORMATION
  Report Type: 
  Country: None (occurrence: None)
  Receive Date: 20080509
  Receipt Date: 20080428
  Transmission Date: 20081010
  Serious: Yes (Other)
  Sender: FDA-Public Use
  Company Number: JP-PFIZER INC-2008039522

PATIENT
  Age: 21 Year
  Sex: Female

DRUGS (4)
  1. VIBRAMYCIN [Suspect]
     Route: 048
  2. PYDOXAL [Concomitant]
  3. FLAVITAN [Concomitant]
  4. ALLEGRA [Concomitant]

REACTIONS (1)
  - GLUCOSE URINE PRESENT [None]
